FAERS Safety Report 13670438 (Version 2)
Quarter: 2017Q3

REPORT INFORMATION
  Report Type: Spontaneous
  Country: SE (occurrence: SE)
  Receive Date: 20170620
  Receipt Date: 20170808
  Transmission Date: 20171127
  Serious: Yes (Other)
  Sender: FDA-Public Use
  Company Number: SE-NOVOPROD-549658

PATIENT
  Age: 48 Year
  Sex: Male
  Weight: 85 kg

DRUGS (1)
  1. GLUCAGEN HYPOKIT [Suspect]
     Active Substance: GLUCAGON HYDROCHLORIDE
     Indication: NUCLEAR MAGNETIC RESONANCE IMAGING
     Dosage: 1 ML, UNK, LEFT THIGH
     Route: 065
     Dates: start: 20161208, end: 20161208

REACTIONS (10)
  - Myalgia [Recovering/Resolving]
  - Fatigue [Recovering/Resolving]
  - Tremor [Unknown]
  - Product container issue [Unknown]
  - Muscle twitching [Recovering/Resolving]
  - Injection site pain [Recovered/Resolved]
  - Pain in extremity [Recovering/Resolving]
  - Muscle spasms [Recovering/Resolving]
  - Injection site scar [Not Recovered/Not Resolved]
  - Dizziness [Recovering/Resolving]

NARRATIVE: CASE EVENT DATE: 201612
